FAERS Safety Report 17373701 (Version 1)
Quarter: 2020Q1

REPORT INFORMATION
  Report Type: Spontaneous
  Country: US (occurrence: US)
  Receive Date: 20200204
  Receipt Date: 20200204
  Transmission Date: 20200409
  Serious: Yes (Disabling)
  Sender: FDA-Public Use
  Company Number: None

PATIENT
  Age: 25 Year
  Sex: Female
  Weight: 54 kg

DRUGS (3)
  1. MIRENA [Suspect]
     Active Substance: LEVONORGESTREL
     Indication: CONTRACEPTION
     Dates: start: 20190308
  2. MIRENA [Concomitant]
     Active Substance: LEVONORGESTREL
  3. ZYRTEC [Concomitant]
     Active Substance: CETIRIZINE HYDROCHLORIDE

REACTIONS (12)
  - Pain [None]
  - Anxiety [None]
  - Multiple allergies [None]
  - Sleep terror [None]
  - Migraine [None]
  - Stress [None]
  - Loss of consciousness [None]
  - Insomnia [None]
  - Acne [None]
  - Headache [None]
  - Complication of device insertion [None]
  - Condition aggravated [None]

NARRATIVE: CASE EVENT DATE: 20190501
